FAERS Safety Report 6744799-8 (Version None)
Quarter: 2010Q2

REPORT INFORMATION
  Report Type: 
  Country: None (occurrence: None)
  Receive Date: 20100527
  Receipt Date: 20100212
  Transmission Date: 20101027
  Serious: No
  Sender: FDA-Public Use
  Company Number: US-BRISTOL-MYERS SQUIBB COMPANY-14979223

PATIENT
  Age: 57 Year
  Sex: Male

DRUGS (1)
  1. ONGLYZA [Suspect]
     Indication: DIABETES MELLITUS

REACTIONS (1)
  - NASOPHARYNGITIS [None]
